FAERS Safety Report 4379885-3 (Version None)
Quarter: 2004Q2

REPORT INFORMATION
  Report Type: 
  Country: None (occurrence: None)
  Receive Date: 20040610
  Receipt Date: 20040602
  Transmission Date: 20050107
  Serious: Yes (Other)
  Sender: FDA-Public Use
  Company Number: 2004216644US

PATIENT
  Sex: Female

DRUGS (7)
  1. PROVERA [Suspect]
     Indication: HORMONE REPLACEMENT THERAPY
  2. PREMARIN [Suspect]
     Indication: HORMONE REPLACEMENT THERAPY
  3. PREMPRO [Suspect]
     Indication: HORMONE REPLACEMENT THERAPY
  4. PREMPHASE (PREMARIN;CYCRIN 14/14) [Suspect]
     Indication: HORMONE REPLACEMENT THERAPY
  5. ESTRATEST [Suspect]
     Indication: HORMONE REPLACEMENT THERAPY
  6. ESTROGENIC SUBSTANCE [Suspect]
     Indication: HORMONE REPLACEMENT THERAPY
  7. MEDROXYPROGESTERONE ACETATE [Suspect]
     Indication: HORMONE REPLACEMENT THERAPY

REACTIONS (1)
  - BREAST CANCER METASTATIC [None]
